FAERS Safety Report 18257156 (Version 1)
Quarter: 2020Q3

REPORT INFORMATION
  Report Type: Spontaneous
  Country: BR (occurrence: BR)
  Receive Date: 20200911
  Receipt Date: 20200911
  Transmission Date: 20201103
  Serious: Yes (Hospitalization, Other)
  Sender: FDA-Public Use
  Company Number: BR-TORRENT-00005442

PATIENT
  Age: 53 Year
  Sex: Female
  Weight: 63 kg

DRUGS (2)
  1. LAMITOR CD [Suspect]
     Active Substance: LAMOTRIGINE
     Indication: ANXIETY
     Dosage: 1 TABLET DAILY IN AFTERNOON, ORIENTED TO ADMINISTER IN MORNING
     Route: 048
     Dates: start: 20200805, end: 20200825
  2. DELLER [Concomitant]
     Indication: ANXIETY
     Dosage: ONE TABLET IN MORNING
     Route: 048
     Dates: start: 202005

REACTIONS (11)
  - Suffocation feeling [Recovered/Resolved]
  - Pyrexia [Recovered/Resolved]
  - Syncope [Recovered/Resolved]
  - Feeling abnormal [Recovered/Resolved]
  - Therapy cessation [Unknown]
  - Cough [Recovered/Resolved]
  - Rash macular [Recovering/Resolving]
  - Headache [Recovered/Resolved]
  - Swelling [Recovering/Resolving]
  - Hypotension [Recovered/Resolved]
  - Nightmare [Recovered/Resolved]

NARRATIVE: CASE EVENT DATE: 202008
